FAERS Safety Report 23145834 (Version 5)
Quarter: 2024Q1

REPORT INFORMATION
  Report Type: Spontaneous
  Country: AM (occurrence: None)
  Receive Date: 20231103
  Receipt Date: 20240115
  Transmission Date: 20240410
  Serious: Yes (Hospitalization, Other)
  Sender: FDA-Public Use
  Company Number: AM-ROCHE-3450582

PATIENT
  Age: 43 Year
  Sex: Female

DRUGS (2)
  1. MABTHERA [Suspect]
     Active Substance: RITUXIMAB
     Indication: Systemic scleroderma
     Dosage: FOR 4 CONSECUTIVE WEEKS BY 500MG, TWICE A YEAR
     Route: 041
     Dates: start: 201410, end: 202003
  2. MABTHERA [Suspect]
     Active Substance: RITUXIMAB
     Indication: Raynaud^s phenomenon

REACTIONS (4)
  - Off label use [Unknown]
  - COVID-19 pneumonia [Unknown]
  - Disease progression [Unknown]
  - Mouth ulceration [Unknown]

NARRATIVE: CASE EVENT DATE: 20231001
